FAERS Safety Report 18116131 (Version 5)
Quarter: 2021Q3

REPORT INFORMATION
  Report Type: Other
  Country: CA (occurrence: CA)
  Receive Date: 20200806
  Receipt Date: 20210729
  Transmission Date: 20211014
  Serious: No
  Sender: FDA-Public Use
  Company Number: CA-ROCHE-2074134

PATIENT
  Age: 39 Year
  Sex: Female
  Weight: 72 kg

DRUGS (5)
  1. WELLBUTRIN [Concomitant]
     Active Substance: BUPROPION HYDROCHLORIDE
  2. OCREVUS [Suspect]
     Active Substance: OCRELIZUMAB
     Indication: RELAPSING-REMITTING MULTIPLE SCLEROSIS
     Dosage: 300 MG AT DAY 0 AND 14, THEN 600 MG EVERY 6 MONTH
     Route: 042
     Dates: start: 20180201
  3. TRAZODONE [Concomitant]
     Active Substance: TRAZODONE HYDROCHLORIDE
     Indication: SLEEP DISORDER
  4. OCREVUS [Suspect]
     Active Substance: OCRELIZUMAB
     Dosage: DAY 14 INFUSION
     Route: 042
     Dates: start: 20180215, end: 20201015
  5. PAXIL [Concomitant]
     Active Substance: PAROXETINE HYDROCHLORIDE

REACTIONS (11)
  - Influenza [Recovered/Resolved]
  - Rhinorrhoea [Recovered/Resolved]
  - Chest pain [Recovering/Resolving]
  - Fatigue [Not Recovered/Not Resolved]
  - Back pain [Recovering/Resolving]
  - Dyspnoea [Recovered/Resolved]
  - Dizziness [Not Recovered/Not Resolved]
  - Pulmonary pain [Recovered/Resolved]
  - Infusion related reaction [Not Recovered/Not Resolved]
  - Memory impairment [Not Recovered/Not Resolved]
  - Sinusitis [Recovered/Resolved]

NARRATIVE: CASE EVENT DATE: 20180201
